FAERS Safety Report 13499860 (Version 2)
Quarter: 2017Q2

REPORT INFORMATION
  Report Type: Spontaneous
  Country: US (occurrence: US)
  Receive Date: 20170501
  Receipt Date: 20170512
  Transmission Date: 20170830
  Serious: Yes (Death)
  Sender: FDA-Public Use
  Company Number: US-MALLINCKRODT-T201701826

PATIENT
  Sex: Male

DRUGS (1)
  1. H.P. ACTHAR [Suspect]
     Active Substance: CORTICOTROPIN
     Indication: MYOSITIS
     Dosage: 80 UNITS TWICE WEEKLY
     Route: 065
     Dates: start: 20170301, end: 20170309

REACTIONS (1)
  - Amyotrophic lateral sclerosis [Fatal]
